FAERS Safety Report 5760322-9 (Version None)
Quarter: 2008Q2

REPORT INFORMATION
  Report Type: 
  Country: None (occurrence: None)
  Receive Date: 20080602
  Receipt Date: 20080501
  Transmission Date: 20081010
  Serious: Yes (Hospitalization)
  Sender: FDA-Public Use
  Company Number: 2008PL000074

PATIENT
  Age: 56 Year
  Sex: Female

DRUGS (3)
  1. IMURAN [Suspect]
     Indication: IMMUNOSUPPRESSANT DRUG THERAPY
     Dosage: 75 MG;QD;PO
     Route: 048
  2. CYCLOSPORINE [Suspect]
     Indication: IMMUNOSUPPRESSANT DRUG THERAPY
     Dosage: 225 MG;BID;
  3. PREDNISONE TAB [Concomitant]

REACTIONS (5)
  - ARTERIAL DISORDER [None]
  - DIALYSIS [None]
  - DRUG TOXICITY [None]
  - NEPHROPATHY [None]
  - RENAL FAILURE [None]
